FAERS Safety Report 17809771 (Version 2)
Quarter: 2020Q3

REPORT INFORMATION
  Report Type: Report from Study
  Country: AT (occurrence: AT)
  Receive Date: 20200520
  Receipt Date: 20200715
  Transmission Date: 20201102
  Serious: Yes (Death, Hospitalization, Other)
  Sender: FDA-Public Use
  Company Number: AT-BRISTOL-MYERS SQUIBB COMPANY-BMS-2020-030343

PATIENT
  Age: 81 Year
  Sex: Male
  Weight: 69 kg

DRUGS (12)
  1. NIVOLUMAB [Suspect]
     Active Substance: NIVOLUMAB
     Indication: TRANSITIONAL CELL CARCINOMA
     Dosage: 240 MILLIGRAM, Q2WK
     Route: 042
     Dates: start: 20191121, end: 20200228
  2. NEPHROTRANS [Concomitant]
     Active Substance: SODIUM BICARBONATE
     Indication: PREMEDICATION
     Dosage: 500 MILLIGRAM
     Route: 065
     Dates: start: 20190901
  3. SPIROBENE [Concomitant]
     Active Substance: SPIRONOLACTONE
     Indication: PREMEDICATION
     Dosage: 25 MILLIGRAM
     Route: 065
     Dates: start: 20191113
  4. ATORVASTATIN [Concomitant]
     Active Substance: ATORVASTATIN
     Indication: PREMEDICATION
     Dosage: 40 MILLIGRAM
     Route: 065
     Dates: start: 20090101
  5. CANDESARTAN. [Concomitant]
     Active Substance: CANDESARTAN
     Indication: PREMEDICATION
     Dosage: 8 MILLIGRAM
     Route: 065
     Dates: start: 20090101
  6. NOMEXOR [Concomitant]
     Active Substance: NEBIVOLOL HYDROCHLORIDE
     Indication: PREMEDICATION
     Dosage: 2.5 MILLIGRAM
     Route: 065
     Dates: start: 20090101
  7. VASTAREL [Concomitant]
     Active Substance: TRIMETAZIDINE DIHYDROCHLORIDE
     Indication: PREMEDICATION
     Dosage: 70 MILLIGRAM
     Route: 065
     Dates: start: 20191001
  8. LEVOLAC [Concomitant]
     Active Substance: LACTULOSE
     Indication: PREMEDICATION
     Dosage: UNK
     Route: 065
     Dates: start: 20191113
  9. ELIQUIS [Concomitant]
     Active Substance: APIXABAN
     Indication: PREMEDICATION
     Dosage: 10 MILLIGRAM
     Route: 065
     Dates: start: 20191001
  10. OLEOVIT [BENZALKONIUM CHLORIDE;DEXPANTHENOL;RETINOL PALMITATE] [Concomitant]
     Indication: PREMEDICATION
     Dosage: 1 GTT DROPS
     Route: 065
     Dates: start: 20191001
  11. AMIODARON [AMIODARONE] [Concomitant]
     Active Substance: AMIODARONE
     Indication: PRODUCT USED FOR UNKNOWN INDICATION
     Dosage: 200 MILLIGRAM
     Route: 065
     Dates: start: 20191225
  12. LISKANTIN [Concomitant]
     Active Substance: PRIMIDONE
     Indication: PREMEDICATION
     Dosage: UNK
     Route: 065
     Dates: start: 20180101

REACTIONS (1)
  - Multiple organ dysfunction syndrome [Fatal]

NARRATIVE: CASE EVENT DATE: 20200410
